FAERS Safety Report 4738158-7 (Version None)
Quarter: 2005Q3

REPORT INFORMATION
  Report Type: 
  Country: None (occurrence: None)
  Receive Date: 20050809
  Receipt Date: 20050325
  Transmission Date: 20060218
  Serious: Yes (Hospitalization)
  Sender: FDA-Public Use
  Company Number: JP-ROCHE-400781

PATIENT
  Age: 13 Year
  Sex: Female

DRUGS (3)
  1. ROCEPHIN [Suspect]
     Indication: INFECTION
     Route: 042
     Dates: start: 20050303, end: 20050307
  2. CLARITHROMYCIN [Concomitant]
     Route: 048
     Dates: start: 20050304, end: 20050310
  3. MEROPEN [Concomitant]
     Route: 042
     Dates: start: 20050308, end: 20050310

REACTIONS (2)
  - PYREXIA [None]
  - URTICARIA [None]
